FAERS Safety Report 21990211 (Version 1)
Quarter: 2023Q1

REPORT INFORMATION
  Report Type: Spontaneous
  Country: US (occurrence: US)
  Receive Date: 20230214
  Receipt Date: 20230214
  Transmission Date: 20230418
  Serious: No
  Sender: FDA-Public Use
  Company Number: US-PFIZER INC-202300064953

PATIENT
  Age: 67 Year
  Sex: Female

DRUGS (7)
  1. PAXLOVID [Suspect]
     Active Substance: NIRMATRELVIR\RITONAVIR
     Indication: COVID-19 treatment
     Dosage: UNK
     Dates: start: 20230202, end: 20230206
  2. BUPROPION [Concomitant]
     Active Substance: BUPROPION
     Dates: start: 20220301
  3. PREDNISONE [Concomitant]
     Active Substance: PREDNISONE
     Dosage: DECREASING DOSAGE
  4. FAMOTIDINE [Concomitant]
     Active Substance: FAMOTIDINE
  5. ASPIRIN [Concomitant]
     Active Substance: ASPIRIN
  6. EXTRA VITAMIN C [Concomitant]
  7. ZINC [Concomitant]
     Active Substance: ZINC

REACTIONS (2)
  - COVID-19 [Recovering/Resolving]
  - Disease recurrence [Recovering/Resolving]

NARRATIVE: CASE EVENT DATE: 20230201
